FAERS Safety Report 4926936-0 (Version None)
Quarter: 2006Q1

REPORT INFORMATION
  Report Type: 
  Country: None (occurrence: None)
  Receive Date: 20060228
  Receipt Date: 20050914
  Transmission Date: 20060701
  Serious: No
  Sender: FDA-Public Use
  Company Number: US-GLAXOSMITHKLINE-A0574248A

PATIENT
  Sex: Female

DRUGS (3)
  1. LAMICTAL [Suspect]
     Indication: MIGRAINE
     Dosage: 800MG UNKNOWN
     Route: 048
  2. CLONAZEPAM [Concomitant]
  3. AMBIEN [Concomitant]

REACTIONS (3)
  - DISTURBANCE IN ATTENTION [None]
  - DRUG INTOLERANCE [None]
  - DYSPHORIA [None]
